FAERS Safety Report 24365339 (Version 1)
Quarter: 2024Q3

REPORT INFORMATION
  Report Type: Spontaneous
  Country: FR (occurrence: FR)
  Receive Date: 20240926
  Receipt Date: 20240926
  Transmission Date: 20241016
  Serious: Yes (Death)
  Sender: TEVA
  Company Number: None

PATIENT
  Age: 81 Year
  Sex: Female

DRUGS (3)
  1. LENALIDOMIDE [Interacting]
     Active Substance: LENALIDOMIDE
     Indication: Lymphoma
     Dosage: 1 PER DAY FOR 21 DAYS AND ONE WEEK BREAK.
     Route: 048
     Dates: start: 20230331, end: 20230615
  2. TAFASITAMAB [Interacting]
     Active Substance: TAFASITAMAB
     Indication: Lymphoma
     Dosage: MAMMAL/HAMSTER/CHO CELLS
     Route: 042
     Dates: start: 20230331, end: 20230602
  3. METHYLPREDNISOLONE [Interacting]
     Active Substance: METHYLPREDNISOLONE
     Indication: Lymphoma
     Route: 042
     Dates: start: 20230331, end: 20230602

REACTIONS (2)
  - Sepsis [Fatal]
  - Drug interaction [Fatal]

NARRATIVE: CASE EVENT DATE: 20230331
